FAERS Safety Report 16030220 (Version 2)
Quarter: 2019Q1

REPORT INFORMATION
  Report Type: Spontaneous
  Country: US (occurrence: US)
  Receive Date: 20190304
  Receipt Date: 20190328
  Transmission Date: 20190418
  Serious: Yes (Other)
  Sender: FDA-Public Use
  Company Number: US-BAYER-2019-044454

PATIENT
  Age: 61 Year
  Sex: Female
  Weight: 68.03 kg

DRUGS (1)
  1. GADAVIST [Suspect]
     Active Substance: GADOBUTROL
     Indication: NUCLEAR MAGNETIC RESONANCE IMAGING SPINAL
     Dosage: 7 ML, ONCE
     Route: 042
     Dates: start: 20190228

REACTIONS (15)
  - Micturition urgency [None]
  - Perseveration [None]
  - Laryngospasm [None]
  - Urticaria [Recovering/Resolving]
  - Urticaria [None]
  - Headache [Recovered/Resolved]
  - Skin tightness [Not Recovered/Not Resolved]
  - Confusional state [Not Recovered/Not Resolved]
  - Mental status changes [None]
  - Hypertensive crisis [None]
  - Lip swelling [None]
  - Feeling hot [Unknown]
  - Throat tightness [Not Recovered/Not Resolved]
  - Gingival swelling [None]
  - Blister [None]

NARRATIVE: CASE EVENT DATE: 20190228
